FAERS Safety Report 24280215 (Version 4)
Quarter: 2025Q1

REPORT INFORMATION
  Report Type: Spontaneous
  Country: ES (occurrence: ES)
  Receive Date: 20240904
  Receipt Date: 20250318
  Transmission Date: 20250409
  Serious: Yes (Other)
  Sender: SANDOZ
  Company Number: ES-TEVA-VS-3226277

PATIENT
  Age: 36 Year
  Sex: Female
  Weight: 83.3 kg

DRUGS (33)
  1. AMITRIPTYLINE HYDROCHLORIDE [Suspect]
     Active Substance: AMITRIPTYLINE HYDROCHLORIDE
     Indication: Product used for unknown indication
     Dosage: 1 DOSAGE FORM, DAILY (ONE TABLET/DAY (0 - 0 - 0 -1)
     Route: 048
  2. THIAMINE HYDROCHLORIDE [Concomitant]
     Active Substance: THIAMINE HYDROCHLORIDE
     Route: 048
  3. THIAMINE HYDROCHLORIDE [Concomitant]
     Active Substance: THIAMINE HYDROCHLORIDE
     Indication: Product used for unknown indication
     Route: 048
  4. CALCIFEDIOL [Concomitant]
     Active Substance: CALCIFEDIOL
     Indication: Product used for unknown indication
     Route: 048
  5. CALCIFEDIOL [Concomitant]
     Active Substance: CALCIFEDIOL
     Route: 048
  6. CYANOCOBALAMIN [Concomitant]
     Active Substance: CYANOCOBALAMIN
     Indication: Product used for unknown indication
     Route: 065
  7. ELETRIPTAN [Concomitant]
     Active Substance: ELETRIPTAN
     Dosage: 1 DOSAGE FORM, DAILY (ONE TABLET/DAY)/UNK (SPORADIC USE)
     Route: 048
  8. ELETRIPTAN [Concomitant]
     Active Substance: ELETRIPTAN
     Indication: Product used for unknown indication
     Route: 048
  9. EPINEPHRINE [Concomitant]
     Active Substance: EPINEPHRINE
     Indication: Product used for unknown indication
     Route: 065
  10. EPINEPHRINE [Concomitant]
     Active Substance: EPINEPHRINE
     Route: 065
  11. LEVOTHYROXINE SODIUM [Concomitant]
     Active Substance: LEVOTHYROXINE SODIUM
     Indication: Product used for unknown indication
     Dosage: 75 MCG EVERY 24H/1 DOSAGE FORM, DAILY (ONE TABLET/DAY (1 - 0 - 0 - 0))
     Route: 048
  12. FLUTICASONE [Concomitant]
     Active Substance: FLUTICASONE
     Dosage: 27,5 MCG, 2 SPRAY EVERY 24H
     Route: 065
  13. FLUTICASONE [Concomitant]
     Active Substance: FLUTICASONE
     Indication: Product used for unknown indication
     Route: 065
  14. OMEPRAZOLE [Concomitant]
     Active Substance: OMEPRAZOLE
     Dosage: 1 DOSAGE FORM, DAILY (ONE CAP/DAY (0 - 0 - 1 - 0))
     Route: 048
  15. OMEPRAZOLE [Concomitant]
     Active Substance: OMEPRAZOLE
     Indication: Product used for unknown indication
     Route: 065
  16. PALLADONE [Concomitant]
     Active Substance: HYDROMORPHONE HYDROCHLORIDE
     Indication: Product used for unknown indication
     Dosage: 2 DOSAGE FORM, DAILY (2 TABLETS/DAY (0 - 0 - 0 - 2))
     Route: 048
  17. ACETAMINOPHEN [Concomitant]
     Active Substance: ACETAMINOPHEN
     Dosage: 1 DOSAGE FORM, TWO TIMES A DAY (ONE TABLET/12H)
     Route: 048
  18. ACETAMINOPHEN [Concomitant]
     Active Substance: ACETAMINOPHEN
     Indication: Product used for unknown indication
     Dosage: 1 G 40 COMP/1 TABLET/12 H
     Route: 048
  19. TOPIRAMATE [Concomitant]
     Active Substance: TOPIRAMATE
     Indication: Product used for unknown indication
     Dosage: 2 DOSAGE FORM, DAILY (2 TABLETS/DAY (0 - 0 - 2 -0))
     Route: 048
  20. BECLOMETHASONE DIPROPIONATE [Interacting]
     Active Substance: BECLOMETHASONE DIPROPIONATE
     Indication: Product used for unknown indication
     Route: 055
  21. EBASTINE [Interacting]
     Active Substance: EBASTINE
     Dosage: 1 DOSAGE FORM, DAILY (ONE TABLET/DAY)/UNK (SPORADIC USE)
     Route: 048
  22. EBASTINE [Interacting]
     Active Substance: EBASTINE
     Indication: Product used for unknown indication
     Dosage: 20 TABLETS 1 TABLET/24 H
     Route: 048
  23. FENTANYL [Interacting]
     Active Substance: FENTANYL
     Dosage: 133 MCG, 1 EVERY 24H/1 DOSAGE FORM, DAILY (ONE TABLET/DAY)
     Route: 060
  24. FENTANYL [Interacting]
     Active Substance: FENTANYL
     Dosage: 200 MCG, 1 EVERY 24H/1 DOSAGE FORM, DAILY (ONE TABLET/DAY)/ORAL USE
     Route: 060
  25. FENTANYL [Interacting]
     Active Substance: FENTANYL
     Dosage: 133 MCG 30 COMP SUBLIN/1 TABLET/24 H
     Route: 048
  26. FENTANYL [Interacting]
     Active Substance: FENTANYL
     Indication: Product used for unknown indication
     Dosage: 200 MCG 30 TABLETS SUCK/1 TABLET/24 H
     Route: 048
  27. HYDROMORPHONE [Interacting]
     Active Substance: HYDROMORPHONE
     Indication: Product used for unknown indication
     Route: 048
     Dates: end: 202103
  28. PREGABALIN [Interacting]
     Active Substance: PREGABALIN
     Indication: Product used for unknown indication
     Route: 048
  29. PREGABALIN [Interacting]
     Active Substance: PREGABALIN
     Indication: Product used for unknown indication
     Dosage: 2 DOSAGE FORM, DAILY (2 TABLETS/DAY (0 - 0 - 2 -0))
     Route: 048
  30. TERBUTALINE [Interacting]
     Active Substance: TERBUTALINE
     Dosage: 500 MCG/INH, 1 INH EVERY 24H/UNK (ONE INH./DAY)
     Route: 055
  31. TERBUTALINE [Interacting]
     Active Substance: TERBUTALINE
     Indication: Product used for unknown indication
     Route: 055
  32. ZOLPIDEM [Interacting]
     Active Substance: ZOLPIDEM TARTRATE
     Indication: Product used for unknown indication
     Dosage: 10 MG 30 TABLETS/1 C/24 H 0 - 0 - 0 - 1
     Route: 048
  33. ZOLPIDEM [Interacting]
     Active Substance: ZOLPIDEM TARTRATE
     Indication: Product used for unknown indication
     Route: 048

REACTIONS (12)
  - Cardiotoxicity [Unknown]
  - Drug interaction [Unknown]
  - Sedation [Unknown]
  - Decreased activity [Recovered/Resolved]
  - Apathy [Recovered/Resolved]
  - Antisocial behaviour [Recovered/Resolved]
  - Irritability [Recovered/Resolved]
  - Apathy [Recovered/Resolved]
  - Pain [Recovered/Resolved]
  - Fatigue [Recovered/Resolved]
  - Depressed mood [Recovered/Resolved]
  - Somnolence [Recovered/Resolved]
